FAERS Safety Report 9365343 (Version 2)
Quarter: 2014Q1

REPORT INFORMATION
  Report Type: Spontaneous
  Country: DE (occurrence: DE)
  Receive Date: 20130625
  Receipt Date: 20140212
  Transmission Date: 20141002
  Serious: Yes (Other)
  Sender: FDA-Public Use
  Company Number: DE-AMGEN-DEUSP2013044056

PATIENT
  Age: 70 Year
  Sex: Female
  Weight: 72 kg

DRUGS (1)
  1. XGEVA [Suspect]
     Indication: RENAL FAILURE
     Dosage: 120 MG, Q4WK
     Route: 058
     Dates: start: 20120314, end: 20120523

REACTIONS (1)
  - Osteonecrosis of jaw [Unknown]
